FAERS Safety Report 8302864-8 (Version None)
Quarter: 2012Q2

REPORT INFORMATION
  Report Type: 
  Country: None (occurrence: None)
  Receive Date: 20120420
  Receipt Date: 20120417
  Transmission Date: 20120825
  Serious: Yes (Hospitalization, Other)
  Sender: FDA-Public Use
  Company Number: US-PFIZER INC-2012023385

PATIENT
  Sex: Female
  Weight: 92.5 kg

DRUGS (1)
  1. LYRICA [Suspect]
     Indication: SCIATIC NERVE INJURY
     Dosage: UNK
     Route: 048

REACTIONS (4)
  - WEIGHT DECREASED [None]
  - MUSCLE RUPTURE [None]
  - JOINT INJURY [None]
  - JOINT DISLOCATION [None]
